FAERS Safety Report 5430287-8 (Version None)
Quarter: 2007Q3

REPORT INFORMATION
  Report Type: 
  Country: None (occurrence: None)
  Receive Date: 20070731
  Receipt Date: 20070416
  Transmission Date: 20080115
  Serious: No
  Sender: FDA-Public Use
  Company Number: US200704003566

PATIENT
  Age: 67 Year
  Sex: Female
  Weight: 81.6 kg

DRUGS (3)
  1. BYETTA [Suspect]
     Indication: TYPE 2 DIABETES MELLITUS
     Dosage: 5 UG, 2/D, SUBCUTANEOUS
     Route: 058
     Dates: start: 20070227
  2. EXENATIDE PEN,      DISPOSABLE DEVICE (EXENATIDE PEN) [Concomitant]
  3. METFORMIN HCL [Concomitant]

REACTIONS (4)
  - DECREASED APPETITE [None]
  - EMOTIONAL DISTRESS [None]
  - FEELING JITTERY [None]
  - NAUSEA [None]
